FAERS Safety Report 4629013-1 (Version None)
Quarter: 2005Q2

REPORT INFORMATION
  Report Type: 
  Country: None (occurrence: None)
  Receive Date: 20050405
  Receipt Date: 20050405
  Transmission Date: 20051028
  Serious: Yes (Life-Threatening, Hospitalization)
  Sender: FDA-Public Use
  Company Number: None

PATIENT
  Age: 64 Year
  Sex: Male
  Weight: 84.8226 kg

DRUGS (1)
  1. AMIODARONE 200 MG [Suspect]
     Indication: ARRHYTHMIA
     Dosage: 1 TABLET ONCE A DAILY ORAL
     Route: 048
     Dates: start: 20040428, end: 20050325

REACTIONS (3)
  - EMPHYSEMA [None]
  - PNEUMONIA [None]
  - PULMONARY TOXICITY [None]
